FAERS Safety Report 21915508 (Version 2)
Quarter: 2023Q1

REPORT INFORMATION
  Report Type: Spontaneous
  Country: US (occurrence: None)
  Receive Date: 20230126
  Receipt Date: 20230327
  Transmission Date: 20230417
  Serious: No
  Sender: FDA-Public Use
  Company Number: 2022A418704

PATIENT
  Age: 859 Month
  Sex: Male
  Weight: 95.3 kg

DRUGS (1)
  1. BUDESONIDE\FORMOTEROL FUMARATE DIHYDRATE [Suspect]
     Active Substance: BUDESONIDE\FORMOTEROL FUMARATE DIHYDRATE
     Indication: Asthma
     Dosage: 80/ 4.5 MCG, TWO PUFFS, TWO TIMES A DAY
     Route: 055
     Dates: start: 202112

REACTIONS (6)
  - Nasopharyngitis [Recovering/Resolving]
  - Pulmonary congestion [Recovering/Resolving]
  - Wheezing [Recovered/Resolved]
  - Vertigo [Recovered/Resolved]
  - Thinking abnormal [Recovering/Resolving]
  - Device malfunction [Unknown]

NARRATIVE: CASE EVENT DATE: 20221201
